FAERS Safety Report 7813050-X (Version None)
Quarter: 2011Q4

REPORT INFORMATION
  Report Type: 
  Country: None (occurrence: None)
  Receive Date: 20111013
  Receipt Date: 20111003
  Transmission Date: 20120403
  Serious: Yes (Hospitalization)
  Sender: FDA-Public Use
  Company Number: PHHY2011NL87112

PATIENT

DRUGS (3)
  1. AFINITOR [Suspect]
     Dosage: UNK UKN, UNK
     Dates: start: 20110801
  2. AFINITOR [Suspect]
     Dosage: 5 MG, PER DAY
  3. AFINITOR [Suspect]
     Dosage: 10 MG, PER DAY
     Dates: start: 20110301

REACTIONS (12)
  - BLOOD TESTOSTERONE DECREASED [None]
  - GENERAL PHYSICAL CONDITION ABNORMAL [None]
  - INFLAMMATION [None]
  - DRY SKIN [None]
  - FLUID RETENTION [None]
  - APHTHOUS STOMATITIS [None]
  - ACNE [None]
  - GROIN PAIN [None]
  - BONE PAIN [None]
  - NAIL DISORDER [None]
  - IRON DEFICIENCY [None]
  - MYALGIA [None]
